FAERS Safety Report 11646212 (Version 1)
Quarter: 2015Q4

REPORT INFORMATION
  Report Type: Spontaneous
  Country: US (occurrence: US)
  Receive Date: 20151020
  Receipt Date: 20151020
  Transmission Date: 20160304
  Serious: No
  Sender: FDA-Public Use
  Company Number: US-ROCHE-ITM201504IM013067

PATIENT
  Sex: Female
  Weight: 57.2 kg

DRUGS (1)
  1. ESBRIET [Suspect]
     Active Substance: PIRFENIDONE
     Indication: IDIOPATHIC PULMONARY FIBROSIS
     Dosage: 3, 267 MG CAPSULES THRICE A DAY
     Route: 048
     Dates: start: 20150417

REACTIONS (5)
  - Malaise [Unknown]
  - Dyspnoea [Unknown]
  - Mucous membrane disorder [Unknown]
  - Productive cough [Unknown]
  - Bronchitis [Unknown]
